FAERS Safety Report 4627305-3 (Version None)
Quarter: 2005Q2

REPORT INFORMATION
  Report Type: 
  Country: None (occurrence: None)
  Receive Date: 20050405
  Receipt Date: 20050401
  Transmission Date: 20051028
  Serious: Yes (Hospitalization, Other)
  Sender: FDA-Public Use
  Company Number: US-BOEHRINGER INGELHEIM PHARMACEUTICALS, INC.-2005-BP-05429RO

PATIENT
  Age: 23 Year
  Sex: Male

DRUGS (2)
  1. DEXAMETHASONE [Suspect]
     Indication: SPINAL CORD INJURY
     Dosage: 560 MG X 1, THEN 100 MG/H
     Route: 042
  2. METHYLPREDNISOLONE [Suspect]
     Indication: SPINAL CORD INJURY
     Dosage: 5.4 MG/KG/H
     Route: 042

REACTIONS (6)
  - ADRENAL INSUFFICIENCY [None]
  - BLOOD PRESSURE DECREASED [None]
  - PNEUMONIA [None]
  - POST PROCEDURAL COMPLICATION [None]
  - PYREXIA [None]
  - RESPIRATORY FAILURE [None]
